FAERS Safety Report 7343261-1 (Version None)
Quarter: 2011Q1

REPORT INFORMATION
  Report Type: 
  Country: None (occurrence: None)
  Receive Date: 20110310
  Receipt Date: 20110225
  Transmission Date: 20110831
  Serious: Yes (Other)
  Sender: FDA-Public Use
  Company Number: US-SOLVAY-00211001639

PATIENT
  Age: 10838 Day
  Sex: Female
  Weight: 75.909 kg

DRUGS (3)
  1. TRAZODONE HCL [Concomitant]
     Indication: SLEEP DISORDER
     Dosage: DAILY DOSE:  UNKNOWN
     Route: 065
  2. LORAZEPAM [Concomitant]
     Indication: CONVULSION
     Dosage: DAILY DOSE: 4.5 MILLIGRAM(S), FREQUENCY TIME: 8 HOURS, FREQUENCY: 1, START DATE: APPROX 2006 OR 2007
     Route: 048
  3. MARINOL [Suspect]
     Indication: CONVULSION
     Dosage: DAILY DOSE: 30 MILLIGRAM(S), FREQUENCY TIME: 8 HOURS, FREQUENCY: 1
     Route: 048
     Dates: end: 20110219

REACTIONS (7)
  - WEIGHT DECREASED [None]
  - PAIN [None]
  - DRUG WITHDRAWAL SYNDROME [None]
  - CONVULSION [None]
  - INSOMNIA [None]
  - VOMITING [None]
  - FEELING HOT [None]
